FAERS Safety Report 20511220 (Version 1)
Quarter: 2022Q1

REPORT INFORMATION
  Report Type: Report from Study
  Country: US (occurrence: US)
  Receive Date: 20220224
  Receipt Date: 20220224
  Transmission Date: 20220423
  Serious: Yes (Hospitalization)
  Sender: FDA-Public Use
  Company Number: US-ELI_LILLY_AND_COMPANY-US202107002161

PATIENT
  Age: 47 Year
  Sex: Male
  Weight: 65.3 kg

DRUGS (2)
  1. NECITUMUMAB [Suspect]
     Active Substance: NECITUMUMAB
     Indication: Lung cancer metastatic
     Dosage: 600 MG, OTHER (EVERY 2 WEEKS)
     Route: 042
     Dates: start: 20210514, end: 20210625
  2. AFATINIB [Concomitant]
     Active Substance: AFATINIB
     Indication: Lung cancer metastatic
     Dosage: 40 MG, DAILY
     Route: 048
     Dates: start: 20210514, end: 20210629

REACTIONS (1)
  - Ventricular tachycardia [Recovering/Resolving]

NARRATIVE: CASE EVENT DATE: 20210629
